FAERS Safety Report 8451539-3 (Version None)
Quarter: 2012Q2

REPORT INFORMATION
  Report Type: 
  Country: None (occurrence: None)
  Receive Date: 20120620
  Receipt Date: 20120607
  Transmission Date: 20120825
  Serious: Yes (Life-Threatening, Hospitalization, Other)
  Sender: FDA-Public Use
  Company Number: IT-CELGENEUS-083-50794-11122514

PATIENT
  Age: 62 Year
  Sex: Female

DRUGS (4)
  1. VIDAZA [Suspect]
     Route: 058
     Dates: end: 20120521
  2. ASPIRIN [Concomitant]
     Route: 065
  3. RED BLOOD CELLS [Concomitant]
     Route: 041
  4. VIDAZA [Suspect]
     Route: 058
     Dates: start: 20110509, end: 20110517

REACTIONS (5)
  - PERITONEAL HAEMORRHAGE [None]
  - SPLENIC RUPTURE [None]
  - SHOCK HAEMORRHAGIC [None]
  - THROMBOCYTOPENIA [None]
  - PNEUMONIA [None]
